FAERS Safety Report 6242674-9 (Version None)
Quarter: 2009Q2

REPORT INFORMATION
  Report Type: 
  Country: None (occurrence: None)
  Receive Date: 20090624
  Receipt Date: 20090610
  Transmission Date: 20091009
  Serious: Yes (Other)
  Sender: FDA-Public Use
  Company Number: PHHY2009GB23723

PATIENT

DRUGS (2)
  1. DICLOFENAC [Suspect]
     Indication: PAIN
     Dosage: UNK
  2. XARELTO [Suspect]
     Indication: KNEE ARTHROPLASTY

REACTIONS (4)
  - HAEMARTHROSIS [None]
  - MOVEMENT DISORDER [None]
  - POST PROCEDURAL COMPLICATION [None]
  - POST PROCEDURAL SWELLING [None]
